FAERS Safety Report 9281026 (Version 1)
Quarter: 2013Q2

REPORT INFORMATION
  Report Type: Spontaneous
  Country: US (occurrence: US)
  Receive Date: 20130509
  Receipt Date: 20130509
  Transmission Date: 20140414
  Serious: Yes (Death)
  Sender: FDA-Public Use
  Company Number: US-GLAXOSMITHKLINE-A1022850A

PATIENT
  Age: 22 Year
  Sex: Male

DRUGS (4)
  1. VOTRIENT [Suspect]
     Indication: SOFT TISSUE CANCER
     Dosage: 800MG PER DAY
     Route: 048
     Dates: start: 20120508
  2. LIDOCAINE [Concomitant]
  3. NOVOLOG [Concomitant]
  4. LEVEMIR [Concomitant]

REACTIONS (1)
  - Death [Fatal]
